FAERS Safety Report 20222828 (Version 1)
Quarter: 2021Q4

REPORT INFORMATION
  Report Type: Spontaneous
  Country: FR (occurrence: FR)
  Receive Date: 20211223
  Receipt Date: 20211223
  Transmission Date: 20220304
  Serious: Yes (Hospitalization)
  Sender: FDA-Public Use
  Company Number: None

PATIENT
  Age: 80 Year
  Sex: Male
  Weight: 66 kg

DRUGS (2)
  1. SERTRALINE [Suspect]
     Active Substance: SERTRALINE HYDROCHLORIDE
     Indication: Affective disorder
     Dosage: 50 MG, 1X/DAY
     Route: 048
     Dates: start: 20210723
  2. RISPERDAL [Suspect]
     Active Substance: RISPERIDONE
     Indication: Brief psychotic disorder with marked stressors
     Dosage: 2 MG, 1X/DAY
     Route: 048
     Dates: start: 20210827

REACTIONS (2)
  - Atrial fibrillation [Recovering/Resolving]
  - Off label use [Unknown]

NARRATIVE: CASE EVENT DATE: 20210723
